FAERS Safety Report 8910980 (Version 2)
Quarter: 2012Q4

REPORT INFORMATION
  Report Type: 
  Country: GB (occurrence: GB)
  Receive Date: 20121115
  Receipt Date: 20121120
  Transmission Date: 20130627
  Serious: Yes (Other)
  Sender: FDA-Public Use
  Company Number: GB-WATSON-2012-19128

PATIENT
  Age: 70 Year
  Sex: Male

DRUGS (5)
  1. PRAMIPEXOLE DIHYDROCHLORIDE (UNKNOWN) [Suspect]
     Indication: PARKINSON^S DISEASE
     Dosage: 700 mcg, tid
     Route: 048
     Dates: start: 20110726, end: 20110728
  2. STALEVO [Concomitant]
     Indication: PARKINSON^S DISEASE
     Dosage: 1 DF, unknown, 5 times a daystrength: 125 mg/31.25 mg/200mg
     Route: 065
  3. VESICARE [Concomitant]
     Indication: PRODUCT USED FOR UNKNOWN INDICATION
     Dosage: 1 DF, daily, 10 mg
     Route: 065
  4. CO-CODAMOL [Concomitant]
     Indication: PRODUCT USED FOR UNKNOWN INDICATION
     Dosage: 30/500 (2) 4 times a day
     Route: 065
  5. AMANTADINE [Concomitant]
     Indication: PRODUCT USED FOR UNKNOWN INDICATION
     Dosage: 100 mg, bid
     Route: 065

REACTIONS (1)
  - Parkinson^s disease [Recovered/Resolved]
